FAERS Safety Report 7364292-1 (Version None)
Quarter: 2011Q1

REPORT INFORMATION
  Report Type: 
  Country: None (occurrence: None)
  Receive Date: 20110321
  Receipt Date: 20110303
  Transmission Date: 20110831
  Serious: Yes (Hospitalization, Disabling, Other)
  Sender: FDA-Public Use
  Company Number: B0704870A

PATIENT
  Sex: Female

DRUGS (9)
  1. NEXIUM [Concomitant]
     Route: 065
  2. PROLOPA [Concomitant]
     Route: 065
  3. DYTENZIDE [Concomitant]
     Route: 065
  4. THYROXINE [Concomitant]
     Route: 065
  5. ALPRAZOLAM [Concomitant]
     Route: 065
  6. CITALOPRAM [Concomitant]
     Route: 065
  7. VOTRIENT [Suspect]
     Indication: METASTATIC RENAL CELL CARCINOMA
     Dosage: 800MG PER DAY
     Route: 048
     Dates: start: 20101124, end: 20101211
  8. NOZINAN [Concomitant]
     Route: 065
  9. RANITIDINE [Concomitant]
     Route: 065

REACTIONS (11)
  - BLOOD BILIRUBIN INCREASED [None]
  - C-REACTIVE PROTEIN INCREASED [None]
  - BLOOD UREA INCREASED [None]
  - BLOOD ALKALINE PHOSPHATASE INCREASED [None]
  - GAMMA-GLUTAMYLTRANSFERASE INCREASED [None]
  - ASPARTATE AMINOTRANSFERASE INCREASED [None]
  - HEPATOTOXICITY [None]
  - HEPATIC FAILURE [None]
  - BLOOD THYROID STIMULATING HORMONE INCREASED [None]
  - ALANINE AMINOTRANSFERASE INCREASED [None]
  - BLOOD LACTATE DEHYDROGENASE INCREASED [None]
